FAERS Safety Report 5563890-5 (Version None)
Quarter: 2007Q4

REPORT INFORMATION
  Report Type: 
  Country: None (occurrence: None)
  Receive Date: 20071217
  Receipt Date: 20071011
  Transmission Date: 20080405
  Serious: No
  Sender: FDA-Public Use
  Company Number: US-ASTRAZENECA-2007UW23648

PATIENT
  Age: 54 Year
  Sex: Male
  Weight: 113.4 kg

DRUGS (2)
  1. CRESTOR [Suspect]
     Indication: BLOOD CHOLESTEROL INCREASED
     Route: 048
     Dates: start: 20071001
  2. FLUOXETINE [Concomitant]

REACTIONS (2)
  - DIZZINESS [None]
  - HYPOAESTHESIA [None]
